FAERS Safety Report 16849009 (Version 6)
Quarter: 2020Q2

REPORT INFORMATION
  Report Type: Spontaneous
  Country: CA (occurrence: CA)
  Receive Date: 20190925
  Receipt Date: 20200430
  Transmission Date: 20200713
  Serious: Yes (Other)
  Sender: FDA-Public Use
  Company Number: CA-ROCHE-2420556

PATIENT
  Age: 18 Year
  Sex: Female

DRUGS (8)
  1. CEFALEXIN [Concomitant]
     Active Substance: CEPHALEXIN
     Indication: STAPHYLOCOCCAL INFECTION
  2. BENADRYL [Concomitant]
     Active Substance: DIPHENHYDRAMINE HYDROCHLORIDE
     Indication: PRODUCT USED FOR UNKNOWN INDICATION
     Dosage: UNK UNK, PRN
     Route: 048
  3. XOLAIR [Suspect]
     Active Substance: OMALIZUMAB
     Route: 058
     Dates: start: 20200109
  4. XOLAIR [Suspect]
     Active Substance: OMALIZUMAB
     Route: 058
     Dates: start: 20200206
  5. REACTINE [CETIRIZINE HYDROCHLORIDE] [Concomitant]
     Active Substance: CETIRIZINE HYDROCHLORIDE
     Indication: PRODUCT USED FOR UNKNOWN INDICATION
     Dosage: 2 DF, BID
     Route: 048
  6. CEFALEXIN [Concomitant]
     Active Substance: CEPHALEXIN
     Indication: CHRONIC SPONTANEOUS URTICARIA
     Route: 048
  7. XOLAIR [Suspect]
     Active Substance: OMALIZUMAB
     Indication: CHRONIC SPONTANEOUS URTICARIA
     Dosage: SOLUTION FOR INJECTION/ INFUSION IN PRE-FILLED SYRINGE
     Route: 058
     Dates: start: 20190916
  8. XOLAIR [Suspect]
     Active Substance: OMALIZUMAB
     Route: 058
     Dates: start: 2020

REACTIONS (10)
  - Nasal congestion [Unknown]
  - Oropharyngeal pain [Unknown]
  - Cough [Unknown]
  - Eczema [Recovered/Resolved]
  - Nausea [Unknown]
  - Headache [Unknown]
  - Nasopharyngitis [Unknown]
  - Fatigue [Unknown]
  - Lower respiratory tract infection [Unknown]
  - Pain in extremity [Unknown]

NARRATIVE: CASE EVENT DATE: 20190917
